FAERS Safety Report 10357262 (Version 1)
Quarter: 2014Q3

REPORT INFORMATION
  Report Type: Spontaneous
  Country: US (occurrence: None)
  Receive Date: 20140730
  Receipt Date: 20140730
  Transmission Date: 20150326
  Serious: Yes (Life-Threatening, Hospitalization, Disabling)
  Sender: FDA-Public Use
  Company Number: None

PATIENT
  Age: 46 Year
  Sex: Female
  Weight: 15 kg

DRUGS (7)
  1. NAPROXEN. [Concomitant]
     Active Substance: NAPROXEN
  2. SINUS/ALLERGY [Concomitant]
  3. IBUPROFIN [Concomitant]
  4. ADVIL [Concomitant]
     Active Substance: IBUPROFEN
  5. NORVASC [Concomitant]
     Active Substance: AMLODIPINE BESYLATE
  6. FERROUS SULFATE [Concomitant]
     Active Substance: FERROUS SULFATE\FERROUS SULFATE, DRIED
  7. KEPPRA XR [Suspect]
     Active Substance: LEVETIRACETAM
     Indication: CONVULSION
     Dates: start: 201010, end: 201307

REACTIONS (10)
  - Hallucination [None]
  - Paranoia [None]
  - Decreased appetite [None]
  - Personality change [None]
  - Abnormal behaviour [None]
  - Aggression [None]
  - Mania [None]
  - Circadian rhythm sleep disorder [None]
  - Weight decreased [None]
  - Compulsions [None]

NARRATIVE: CASE EVENT DATE: 20100215
